FAERS Safety Report 10135942 (Version 2)
Quarter: 2014Q2

REPORT INFORMATION
  Report Type: Spontaneous
  Country: PT (occurrence: PT)
  Receive Date: 20140429
  Receipt Date: 20140514
  Transmission Date: 20141212
  Serious: Yes (Death, Other)
  Sender: FDA-Public Use
  Company Number: PT-AMGEN INC.-PRTSP2014030494

PATIENT
  Age: 61 Year
  Sex: Male

DRUGS (8)
  1. ENBREL [Suspect]
     Indication: ANKYLOSING SPONDYLITIS
     Dosage: 50 MG, WEEKLY
     Route: 065
     Dates: start: 2010
  2. ENBREL [Suspect]
     Dosage: UNK
     Route: 065
     Dates: start: 20130701
  3. PRETERAX                           /01421201/ [Concomitant]
     Dosage: 10/2.5MG
  4. CONCOR [Concomitant]
     Dosage: 10 MG, DAILY
  5. DULOXETINE [Concomitant]
     Dosage: UNK
  6. CLOPIDOGREL [Concomitant]
     Dosage: 75 MG, DAILY
  7. SIMVASTATIN [Concomitant]
     Dosage: UNK
  8. ROSILAN [Concomitant]
     Dosage: 7.5 MG, UNK

REACTIONS (2)
  - Death [Fatal]
  - Feeling abnormal [Unknown]
